FAERS Safety Report 6695939-0 (Version None)
Quarter: 2010Q2

REPORT INFORMATION
  Report Type: 
  Country: None (occurrence: None)
  Receive Date: 20100426
  Receipt Date: 20100412
  Transmission Date: 20101027
  Serious: Yes (Other)
  Sender: FDA-Public Use
  Company Number: BR-PFIZER INC-2010039946

PATIENT
  Age: 46 Year
  Sex: Male
  Weight: 70 kg

DRUGS (5)
  1. CHAMPIX [Suspect]
     Indication: TOBACCO USER
     Dosage: 1 MG, EVERY 12 HOURS
     Route: 048
     Dates: start: 20100308, end: 20100412
  2. METFORMIN [Concomitant]
     Indication: DIABETES MELLITUS
     Dosage: 850 MG, 2X/DAY
     Dates: start: 20080101
  3. VYTORIN [Concomitant]
     Indication: BLOOD CHOLESTEROL INCREASED
     Dosage: 10 / 20 MG, 1X/DAY
     Dates: start: 20080101
  4. VYTORIN [Concomitant]
     Indication: BLOOD TRIGLYCERIDES INCREASED
  5. RIVOTRIL [Concomitant]
     Indication: SLEEP DISORDER
     Dosage: 1 MG, 1X/DAY
     Dates: start: 20080101

REACTIONS (3)
  - BLOOD GLUCOSE INCREASED [None]
  - DEPRESSION [None]
  - NERVOUSNESS [None]
